FAERS Safety Report 7339104-2 (Version None)
Quarter: 2011Q1

REPORT INFORMATION
  Report Type: 
  Country: None (occurrence: None)
  Receive Date: 20110228
  Receipt Date: 20110206
  Transmission Date: 20110831
  Serious: Yes (Life-Threatening, Hospitalization)
  Sender: FDA-Public Use
  Company Number: 110206-000938

PATIENT
  Age: 76 Year
  Sex: Female

DRUGS (2)
  1. LIPITOR [Concomitant]
  2. VITAPOWER VITAMINS, GUTHY-RENKER LLC [Suspect]
     Dosage: ONCE DAILY, ORAL; ONE DOSE
     Route: 048
     Dates: end: 20101229

REACTIONS (3)
  - DYSPNOEA [None]
  - SWOLLEN TONGUE [None]
  - PHARYNGEAL OEDEMA [None]
